FAERS Safety Report 15573365 (Version 1)
Quarter: 2018Q4

REPORT INFORMATION
  Report Type: Report from Study
  Country: US (occurrence: US)
  Receive Date: 20181101
  Receipt Date: 20181101
  Transmission Date: 20190205
  Serious: Yes (Hospitalization)
  Sender: FDA-Public Use
  Company Number: US-TEVA-2018-US-968445

PATIENT
  Age: 57 Year
  Sex: Male

DRUGS (1)
  1. AUSTEDO [Suspect]
     Active Substance: DEUTETRABENAZINE
     Indication: TARDIVE DYSKINESIA
     Dosage: 12 MILLIGRAM DAILY; HALF A PILL OF 12MG DOSE IN THE MORNING AND HALF A PILL IN THE EVENING
     Route: 065
     Dates: start: 20180724

REACTIONS (3)
  - Pyrexia [Recovering/Resolving]
  - Wrong technique in product usage process [Unknown]
  - Hallucination [Recovering/Resolving]

NARRATIVE: CASE EVENT DATE: 201809
